FAERS Safety Report 9476009 (Version 1)
Quarter: 2013Q3

REPORT INFORMATION
  Report Type: Spontaneous
  Country: RU (occurrence: RU)
  Receive Date: 20130826
  Receipt Date: 20130826
  Transmission Date: 20140515
  Serious: Yes (Death, Hospitalization)
  Sender: FDA-Public Use
  Company Number: RU-MYLANLABS-2013S1018083

PATIENT
  Age: 6 Month
  Sex: Male

DRUGS (8)
  1. METHOTREXATE [Suspect]
     Indication: PRIMITIVE NEUROECTODERMAL TUMOUR
     Dosage: 5 G/M2 INFUSION OVER 24H ON D5 OF HIT-2000 PROGRAMME (RATED DOSE 1.8G)
     Route: 050
  2. VINCRISTINE [Concomitant]
     Indication: PRIMITIVE NEUROECTODERMAL TUMOUR
     Dosage: 0.005 MG/KG ON D1 OF HIT-2000 PROGRAMME
     Route: 065
  3. CARBOPLATIN [Concomitant]
     Indication: PRIMITIVE NEUROECTODERMAL TUMOUR
     Dosage: 25 MG/KG ON D1 OF HIT-2000 PROGRAMME
     Route: 065
  4. VEPESID [Concomitant]
     Indication: PRIMITIVE NEUROECTODERMAL TUMOUR
     Dosage: 2 MG/KG ON D2-3 OF HIT-2000 PROGRAMME
     Route: 065
  5. CYCLOPHOSPHAMIDE [Concomitant]
     Indication: PRIMITIVE NEUROECTODERMAL TUMOUR
     Dosage: 65 MG/KG ON D2-3 OF HIT-2000 PROGRAMME
     Route: 065
  6. FOLINIC ACID [Concomitant]
     Dosage: 50 MG/M2; INCREASED TO 233 MG/M2 EVERY 3H
     Route: 065
  7. FOLINIC ACID [Concomitant]
     Dosage: LATER RECEIVED 15 MG/M2 EVERY 6H FOR 11 DOSES
     Route: 065
  8. FOLINIC ACID [Concomitant]
     Dosage: FOR 11 DOSES
     Route: 065

REACTIONS (7)
  - Cardiopulmonary failure [Fatal]
  - Erythema [Not Recovered/Not Resolved]
  - Mucosal inflammation [Not Recovered/Not Resolved]
  - Pancytopenia [Not Recovered/Not Resolved]
  - Mouth haemorrhage [Not Recovered/Not Resolved]
  - Vomiting [Not Recovered/Not Resolved]
  - Melaena [Not Recovered/Not Resolved]
